FAERS Safety Report 7800366-6 (Version None)
Quarter: 2011Q4

REPORT INFORMATION
  Report Type: 
  Country: None (occurrence: None)
  Receive Date: 20111006
  Receipt Date: 20111002
  Transmission Date: 20120403
  Serious: Yes (Life-Threatening, Hospitalization)
  Sender: FDA-Public Use
  Company Number: RS-ROXANE LABORATORIES, INC.-2011-RO-01388RO

PATIENT
  Age: 31 Year
  Sex: Female
  Weight: 50 kg

DRUGS (2)
  1. ETHANOL [Suspect]
     Route: 048
  2. PROPRANOLOL [Suspect]
     Route: 048

REACTIONS (7)
  - INTENTIONAL OVERDOSE [None]
  - SHOCK [None]
  - TACHYCARDIA [None]
  - RESPIRATORY FAILURE [None]
  - COMA [None]
  - CONVULSION [None]
  - HYPOGLYCAEMIA [None]
